FAERS Safety Report 6506403-3 (Version None)
Quarter: 2009Q4

REPORT INFORMATION
  Report Type: 
  Country: None (occurrence: None)
  Receive Date: 20091218
  Receipt Date: 20091209
  Transmission Date: 20100525
  Serious: Yes (Hospitalization, Other)
  Sender: FDA-Public Use
  Company Number: JP-BRISTOL-MYERS SQUIBB COMPANY-14542765

PATIENT
  Age: 66 Year
  Sex: Male

DRUGS (6)
  1. EFAVIRENZ [Interacting]
     Indication: HIV INFECTION
     Route: 048
     Dates: start: 20090201
  2. DIDANOSINE [Suspect]
     Indication: HIV INFECTION
     Dates: start: 20090201
  3. NIFEDIPINE [Interacting]
     Indication: HYPERTENSION
     Route: 048
  4. LAMIVUDINE [Suspect]
     Indication: HIV INFECTION
     Dates: start: 20090201
  5. NICORANDIL [Concomitant]
     Indication: HYPERTENSION
  6. OLMESARTAN MEDOXOMIL [Concomitant]
     Indication: HYPERTENSION

REACTIONS (4)
  - BLOOD PRESSURE FLUCTUATION [None]
  - DRUG INTERACTION [None]
  - DYSPHORIA [None]
  - RENAL IMPAIRMENT [None]
